FAERS Safety Report 5335427-7 (Version None)
Quarter: 2007Q2

REPORT INFORMATION
  Report Type: 
  Country: None (occurrence: None)
  Receive Date: 20070522
  Receipt Date: 20070510
  Transmission Date: 20071010
  Serious: Yes (Death)
  Sender: FDA-Public Use
  Company Number: 07-05-0004

PATIENT
  Age: 46 Year
  Sex: Male
  Weight: 80 kg

DRUGS (11)
  1. FLUCONAZOLE [Suspect]
     Indication: ORAL FUNGAL INFECTION
     Dosage: 50 MG/ DAY
  2. DURAGESIC-100 [Suspect]
     Indication: CANCER PAIN
     Dosage: 100-150 MCG/HOUR, SEVERAL MONTHS
  3. MORPHINE [Concomitant]
  4. DICLOFENAC SODIUM [Concomitant]
  5. PARACETAMOL [Concomitant]
  6. OXAZEPAM [Concomitant]
  7. ZOLPIDEM [Concomitant]
  8. NYSTATIN [Concomitant]
  9. LIDOCAINE ORAL  SPRAY [Concomitant]
  10. LACTULOSE [Concomitant]
  11. RECTAL METOCLOPRAMIDE [Concomitant]

REACTIONS (5)
  - BRAIN OEDEMA [None]
  - DRUG TOXICITY [None]
  - PULMONARY CONGESTION [None]
  - RESPIRATORY DEPRESSION [None]
  - SHOCK [None]
